FAERS Safety Report 6770823-2 (Version None)
Quarter: 2010Q2

REPORT INFORMATION
  Report Type: 
  Country: None (occurrence: None)
  Receive Date: 20100614
  Receipt Date: 20100614
  Transmission Date: 20101027
  Serious: Yes (Hospitalization)
  Sender: FDA-Public Use
  Company Number: None

PATIENT
  Age: 66 Year
  Sex: Male

DRUGS (1)
  1. LISINOPRIL [Suspect]
     Indication: HYPERTENSION
     Dates: start: 20030327, end: 20100520

REACTIONS (4)
  - ANGIOEDEMA [None]
  - DRUG DOSE OMISSION [None]
  - DYSPNOEA [None]
  - MALAISE [None]
